FAERS Safety Report 25763866 (Version 1)
Quarter: 2025Q3

REPORT INFORMATION
  Report Type: Spontaneous
  Country: US (occurrence: US)
  Receive Date: 20250905
  Receipt Date: 20250905
  Transmission Date: 20251020
  Serious: No
  Sender: DOMPE FARMACEUTICI
  Company Number: US-FARMAPROD-202412-4116

PATIENT
  Sex: Female

DRUGS (20)
  1. OXERVATE [Suspect]
     Active Substance: CENEGERMIN-BKBJ
     Indication: Neurotrophic keratopathy
     Route: 047
     Dates: start: 20241112, end: 20241203
  2. OXERVATE [Suspect]
     Active Substance: CENEGERMIN-BKBJ
     Indication: Dry eye
  3. TYLENOL [Concomitant]
     Active Substance: ACETAMINOPHEN
  4. VITAMIN C [Concomitant]
     Active Substance: ASCORBIC ACID
  5. FLAXSEED [Concomitant]
     Active Substance: FLAX SEED
  6. CALCIUM\CHOLECALCIFEROL [Concomitant]
     Active Substance: CALCIUM\CHOLECALCIFEROL
  7. STOOL SOFTENER-LAXATIVE [Concomitant]
  8. CRANBERRY [Concomitant]
     Active Substance: CRANBERRY
  9. FIBER LAX [Concomitant]
     Active Substance: CALCIUM POLYCARBOPHIL
  10. MIRALAX [Concomitant]
     Active Substance: POLYETHYLENE GLYCOL 3350
  11. ELDERBERRY IMMUNE HEALTH [Concomitant]
  12. GABAPENTIN [Concomitant]
     Active Substance: GABAPENTIN
  13. ATENOLOL [Concomitant]
     Active Substance: ATENOLOL
  14. VENLAFAXINE HCL [Concomitant]
     Active Substance: VENLAFAXINE HYDROCHLORIDE
  15. LEVOTHYROXINE SODIUM [Concomitant]
     Active Substance: LEVOTHYROXINE SODIUM
  16. LORAZEPAM [Concomitant]
     Active Substance: LORAZEPAM
  17. OMEPRAZOLE [Concomitant]
     Active Substance: OMEPRAZOLE
  18. ESTRADIOL [Concomitant]
     Active Substance: ESTRADIOL
  19. UNSPECIFIED INGREDIENT [Concomitant]
     Active Substance: UNSPECIFIED INGREDIENT
  20. WHOLE BLOOD [Concomitant]
     Active Substance: WHOLE BLOOD
     Dates: start: 20231130

REACTIONS (5)
  - Wrong technique in product usage process [Unknown]
  - Eye pain [Recovered/Resolved]
  - Headache [Recovered/Resolved]
  - Product dose omission issue [Unknown]
  - Off label use [Recovered/Resolved]
